FAERS Safety Report 14769478 (Version 1)
Quarter: 2018Q2

REPORT INFORMATION
  Report Type: Spontaneous
  Country: IT (occurrence: IT)
  Receive Date: 20180417
  Receipt Date: 20180417
  Transmission Date: 20180711
  Serious: Yes (Hospitalization)
  Sender: FDA-Public Use
  Company Number: IT-TEVA-2018-IT-880235

PATIENT
  Age: 75 Year
  Sex: Male

DRUGS (11)
  1. MIRAPEXIN 1.1?MG TABLETS [Concomitant]
     Route: 048
  2. ATENOLOL. [Concomitant]
     Active Substance: ATENOLOL
     Route: 048
  3. MADOPAR [Concomitant]
     Active Substance: BENSERAZIDE HYDROCHLORIDE\LEVODOPA
     Route: 048
  4. DELTACORTENE [Suspect]
     Active Substance: PREDNISONE
     Indication: SPINAL PAIN
     Route: 048
  5. SEREUPIN [Concomitant]
     Active Substance: PAROXETINE HYDROCHLORIDE
     Route: 048
  6. ENTACAPONE. [Concomitant]
     Active Substance: ENTACAPONE
     Route: 048
  7. ATORVASTATIN CALCIUM TRIHYDRATE [Concomitant]
     Active Substance: ATORVASTATIN CALCIUM
     Route: 048
  8. NIFEDIPINE. [Concomitant]
     Active Substance: NIFEDIPINE
     Route: 048
  9. SIRIO [Concomitant]
     Active Substance: CARBIDOPA\MELEVODOPA
     Route: 048
  10. DICLOFENAC [Suspect]
     Active Substance: DICLOFENAC
     Indication: SPINAL PAIN
     Route: 048
  11. ACEDIUR 50 MG + 15 MG COMPRESSE [Concomitant]
     Route: 048

REACTIONS (3)
  - Anaemia [Recovering/Resolving]
  - Gastric ulcer [Recovering/Resolving]
  - Gastritis erosive [Recovering/Resolving]
